FAERS Safety Report 7171293-5 (Version None)
Quarter: 2010Q4

REPORT INFORMATION
  Report Type: 
  Country: None (occurrence: None)
  Receive Date: 20101217
  Receipt Date: 20101214
  Transmission Date: 20110411
  Serious: Yes (Disabling)
  Sender: FDA-Public Use
  Company Number: AR-ABBOTT-10P-007-0691664-00

PATIENT
  Age: 15 Year
  Sex: Female

DRUGS (2)
  1. SEVORANE LIQUID [Suspect]
     Indication: ANAESTHESIA
     Route: 055
     Dates: start: 20070101, end: 20070101
  2. REMIFENTANIL [Suspect]
     Indication: ANAESTHESIA
     Dates: start: 20070101, end: 20070101

REACTIONS (2)
  - ALTERED STATE OF CONSCIOUSNESS [None]
  - APNOEA [None]
